FAERS Safety Report 20228064 (Version 2)
Quarter: 2022Q1

REPORT INFORMATION
  Report Type: Spontaneous
  Country: US (occurrence: None)
  Receive Date: 20211224
  Receipt Date: 20220204
  Transmission Date: 20220424
  Serious: No
  Sender: FDA-Public Use
  Company Number: 2021A832433

PATIENT
  Sex: Female
  Weight: 136.1 kg

DRUGS (2)
  1. BYDUREON BCISE [Suspect]
     Active Substance: EXENATIDE
     Indication: Type 2 diabetes mellitus
     Route: 058
     Dates: start: 2017
  2. BYDUREON [Suspect]
     Active Substance: EXENATIDE
     Indication: Type 2 diabetes mellitus
     Route: 058
     Dates: start: 2017

REACTIONS (7)
  - Injection site haemorrhage [Unknown]
  - Memory impairment [Unknown]
  - Feeling abnormal [Unknown]
  - Frustration tolerance decreased [Unknown]
  - Product dose omission issue [Unknown]
  - Incorrect dose administered by device [Unknown]
  - Device leakage [Unknown]
